FAERS Safety Report 8218994-5 (Version None)
Quarter: 2012Q1

REPORT INFORMATION
  Report Type: 
  Country: None (occurrence: None)
  Receive Date: 20120319
  Receipt Date: 20120312
  Transmission Date: 20120608
  Serious: Yes (Other)
  Sender: FDA-Public Use
  Company Number: IT-MERCK-1203ITA00023

PATIENT
  Age: 76 Year
  Sex: Female

DRUGS (2)
  1. JANUVIA [Suspect]
     Route: 048
     Dates: start: 20110212, end: 20120211
  2. GLYBURIDE [Suspect]
     Route: 048
     Dates: start: 20110212, end: 20120211

REACTIONS (1)
  - HYPOGLYCAEMIA [None]
